FAERS Safety Report 8511985-6 (Version None)
Quarter: 2012Q2

REPORT INFORMATION
  Report Type: 
  Country: None (occurrence: None)
  Receive Date: 20120405
  Receipt Date: 20080721
  Transmission Date: 20120825
  Serious: Yes (Hospitalization)
  Sender: FDA-Public Use
  Company Number: PHEH2008US06820

PATIENT

DRUGS (1)
  1. RECLAST [Suspect]
     Indication: OSTEOPOROSIS
     Dosage: 5 MG
     Dates: start: 20080603

REACTIONS (3)
  - RENAL FAILURE ACUTE [None]
  - BLOOD CREATININE INCREASED [None]
  - BLOOD UREA INCREASED [None]
